FAERS Safety Report 15314928 (Version 1)
Quarter: 2018Q3

REPORT INFORMATION
  Report Type: Spontaneous
  Country: CA (occurrence: CA)
  Receive Date: 20180824
  Receipt Date: 20180824
  Transmission Date: 20181010
  Serious: Yes (Hospitalization)
  Sender: FDA-Public Use
  Company Number: CA-PERRIGO-18CA008249

PATIENT
  Age: 13 Year
  Sex: Female
  Weight: 59.86 kg

DRUGS (1)
  1. ACETAMINOPHEN. [Suspect]
     Active Substance: ACETAMINOPHEN
     Indication: INTENTIONAL OVERDOSE
     Dosage: UNKNOWN, UNKNOWN
     Route: 048

REACTIONS (3)
  - Hepatic failure [Recovered/Resolved]
  - Toxicity to various agents [Recovered/Resolved]
  - Brain oedema [Recovered/Resolved]
